FAERS Safety Report 6339106-9 (Version None)
Quarter: 2009Q3

REPORT INFORMATION
  Report Type: 
  Country: None (occurrence: None)
  Receive Date: 20090903
  Receipt Date: 20090831
  Transmission Date: 20100115
  Serious: Yes (Life-Threatening, Hospitalization)
  Sender: FDA-Public Use
  Company Number: US-BRISTOL-MYERS SQUIBB COMPANY-14760953

PATIENT
  Sex: Female

DRUGS (2)
  1. SPRYCEL [Suspect]
  2. GLEEVEC [Concomitant]

REACTIONS (1)
  - RESPIRATORY ARREST [None]
